FAERS Safety Report 4697956-9 (Version None)
Quarter: 2005Q2

REPORT INFORMATION
  Report Type: 
  Country: None (occurrence: None)
  Receive Date: 20050621
  Receipt Date: 20050616
  Transmission Date: 20051028
  Serious: Yes (Hospitalization)
  Sender: FDA-Public Use
  Company Number: 214212

PATIENT
  Age: 40 Year
  Sex: Female

DRUGS (1)
  1. XOLAIR [Suspect]
     Indication: ASTHMA
     Dosage: 150 MG,Q4W, SUBCUTANEOUS
     Route: 058
     Dates: start: 20041103

REACTIONS (2)
  - CHEST DISCOMFORT [None]
  - DYSPNOEA [None]
